FAERS Safety Report 13472603 (Version 2)
Quarter: 2017Q2

REPORT INFORMATION
  Report Type: Other
  Country: ES (occurrence: ES)
  Receive Date: 20170424
  Receipt Date: 20170426
  Transmission Date: 20170830
  Serious: Yes (Other)
  Sender: FDA-Public Use
  Company Number: ES-HIKMA PHARMACEUTICALS CO. LTD-2017ES005082

PATIENT

DRUGS (1)
  1. INFLECTRA [Suspect]
     Active Substance: INFLIXIMAB-DYYB
     Indication: PSORIATIC ARTHROPATHY
     Dosage: 150 MG, CYCLIC (EVERY 8 WEEKS)
     Route: 042
     Dates: start: 20161128, end: 20170109

REACTIONS (5)
  - Pyrexia [Recovered/Resolved]
  - Weight decreased [Recovered/Resolved]
  - Arthritis [Recovered/Resolved]
  - Drug ineffective [Recovering/Resolving]
  - Psoriasis [Recovered/Resolved]

NARRATIVE: CASE EVENT DATE: 20170112
